FAERS Safety Report 8215333-0 (Version None)
Quarter: 2012Q1

REPORT INFORMATION
  Report Type: 
  Country: None (occurrence: None)
  Receive Date: 20120316
  Receipt Date: 20120307
  Transmission Date: 20120608
  Serious: Yes (Other)
  Sender: FDA-Public Use
  Company Number: US-AMGEN-USASP2012016210

PATIENT
  Age: 63 Year
  Sex: Female

DRUGS (2)
  1. ENBREL [Suspect]
     Indication: RHEUMATOID ARTHRITIS
     Dosage: UNK
  2. TRAMADOL HCL [Concomitant]
     Dosage: UNK

REACTIONS (4)
  - PAIN [None]
  - STRESS [None]
  - NEPHROLITHIASIS [None]
  - BONE SWELLING [None]
